FAERS Safety Report 7826138-4 (Version None)
Quarter: 2011Q4

REPORT INFORMATION
  Report Type: 
  Country: None (occurrence: None)
  Receive Date: 20111019
  Receipt Date: 20111011
  Transmission Date: 20120403
  Serious: Yes (Death, Life-Threatening, Hospitalization, Other)
  Sender: FDA-Public Use
  Company Number: US-CELGENEUS-087-50794-11043076

PATIENT
  Sex: Male

DRUGS (17)
  1. ITRACONAZOLE [Concomitant]
     Dosage: 200 MILLIGRAM
     Route: 041
     Dates: start: 20110419
  2. VIDAZA [Suspect]
     Indication: MYELODYSPLASTIC SYNDROME
     Dosage: 75 MILLIGRAM/SQ. METER
     Route: 058
     Dates: start: 20110329, end: 20110404
  3. ADONA [Concomitant]
     Dosage: 3 DOSAGE FORMS
     Route: 048
     Dates: end: 20110710
  4. GRAN [Concomitant]
     Dosage: 300 MICROGRAM
     Route: 041
     Dates: start: 20110506, end: 20110711
  5. EXJADE [Concomitant]
     Dosage: 1 DOSAGE FORMS
     Route: 048
     Dates: end: 20110710
  6. TRANEXAMIC ACID [Concomitant]
     Dosage: 3 DOSAGE FORMS
     Route: 048
     Dates: end: 20110710
  7. PURSENNID [Concomitant]
     Dosage: 2 DOSAGE FORMS
     Route: 048
     Dates: end: 20110710
  8. KYTRIL [Concomitant]
     Dosage: 1 DOSAGE FORMS
     Route: 041
     Dates: start: 20110329, end: 20110404
  9. PRIMOBOLAN-DEPOT INJ [Concomitant]
     Dosage: 4 DOSAGE FORMS
     Route: 048
     Dates: end: 20110710
  10. DEPAS [Concomitant]
     Dosage: 1 DOSAGE FORMS
     Route: 048
     Dates: end: 20110710
  11. MEROPENEM [Concomitant]
     Dosage: 3 GRAM
     Route: 041
     Dates: start: 20110422, end: 20110505
  12. PYDOXAL [Concomitant]
     Dosage: 3 DOSAGE FORMS
     Route: 048
     Dates: start: 20110329, end: 20110710
  13. ZOLPIDEM [Concomitant]
     Dosage: 1 DOSAGE FORMS
     Route: 048
     Dates: start: 20110329, end: 20110710
  14. HABEKACIN [Concomitant]
     Dosage: 300 MILLIGRAM
     Route: 041
     Dates: start: 20110415
  15. GLAKAY [Concomitant]
     Dosage: 3 DOSAGE FORMS
     Route: 048
     Dates: end: 20110710
  16. MAXIPIME [Concomitant]
     Dosage: 4 GRAM
     Route: 041
     Dates: start: 20110413, end: 20110421
  17. NEUPOGEN [Concomitant]
     Route: 065

REACTIONS (9)
  - WHITE BLOOD CELL COUNT DECREASED [None]
  - PYREXIA [None]
  - NECROTISING FASCIITIS [None]
  - NEUTROPHIL COUNT DECREASED [None]
  - FEBRILE NEUTROPENIA [None]
  - GENITAL HERPES [None]
  - STOMATITIS [None]
  - PLATELET COUNT DECREASED [None]
  - ANAEMIA [None]
